FAERS Safety Report 21905198 (Version 1)
Quarter: 2023Q1

REPORT INFORMATION
  Report Type: Spontaneous
  Country: US (occurrence: None)
  Receive Date: 20230123
  Receipt Date: 20230123
  Transmission Date: 20230418
  Serious: Yes (Hospitalization)
  Sender: FDA-Public Use
  Company Number: None

PATIENT
  Sex: 0

DRUGS (2)
  1. VANCOMYCIN [Suspect]
     Active Substance: VANCOMYCIN
  2. FENTANYL [Suspect]
     Active Substance: FENTANYL

REACTIONS (4)
  - Infusion related reaction [None]
  - Erythema [None]
  - Erythema [None]
  - Pruritus [None]
